FAERS Safety Report 23429415 (Version 1)
Quarter: 2024Q1

REPORT INFORMATION
  Report Type: Spontaneous
  Country: US (occurrence: None)
  Receive Date: 20240122
  Receipt Date: 20240122
  Transmission Date: 20240410
  Serious: Yes (Disabling)
  Sender: FDA-Public Use
  Company Number: None

PATIENT
  Age: 48 Year
  Sex: Female
  Weight: 63 kg

DRUGS (2)
  1. IBUPROFEN [Suspect]
     Active Substance: IBUPROFEN
     Indication: Back pain
  2. QUVIVIQ [Concomitant]
     Active Substance: DARIDOREXANT

REACTIONS (10)
  - Non-alcoholic fatty liver [None]
  - Renal failure [None]
  - Dysstasia [None]
  - Pain in extremity [None]
  - Muscular weakness [None]
  - Micturition urgency [None]
  - Depression [None]
  - Gait disturbance [None]
  - Hypoaesthesia [None]
  - Urinary incontinence [None]
